FAERS Safety Report 9474093 (Version 1)
Quarter: 2013Q3

REPORT INFORMATION
  Report Type: Spontaneous
  Country: IT (occurrence: IT)
  Receive Date: 20130823
  Receipt Date: 20130823
  Transmission Date: 20140515
  Serious: Yes (Other)
  Sender: FDA-Public Use
  Company Number: IT-TEVA-427364ISR

PATIENT
  Age: 46 Year
  Sex: Female

DRUGS (1)
  1. AMOXICILLINA TRIIDRATO [Suspect]
     Indication: TOOTHACHE
     Dosage: 1 GRAM DAILY;
     Route: 048
     Dates: start: 20130803, end: 20130803

REACTIONS (2)
  - Throat tightness [Recovered/Resolved]
  - Urticaria [Recovered/Resolved]
